FAERS Safety Report 8431784-3 (Version None)
Quarter: 2012Q2

REPORT INFORMATION
  Report Type: 
  Country: None (occurrence: None)
  Receive Date: 20120613
  Receipt Date: 20120608
  Transmission Date: 20120825
  Serious: Yes (Hospitalization, Other)
  Sender: FDA-Public Use
  Company Number: US-PFIZER INC-2010057687

PATIENT
  Sex: Female

DRUGS (7)
  1. PROZAC [Concomitant]
     Dosage: 2 PILLS EVERY MORNING
  2. PRILOSEC [Concomitant]
     Indication: GASTROOESOPHAGEAL REFLUX DISEASE
     Dosage: UNK, AS NEEDED
  3. DILANTIN-125 [Suspect]
     Dosage: UNK
     Dates: start: 20041021
  4. LORAZEPAM [Concomitant]
     Dosage: UNK
  5. DILANTIN KAPSEAL [Suspect]
     Indication: GRAND MAL CONVULSION
     Dosage: 100 MG, 1X/DAY
     Route: 048
     Dates: start: 20050518, end: 20050525
  6. DILANTIN KAPSEAL [Suspect]
     Dosage: 3X100MG CAPSULES AT BED TIME
     Route: 048
     Dates: start: 20050526, end: 20050528
  7. ACETYLSALICYLIC ACID [Concomitant]
     Dosage: UNK, DAILY

REACTIONS (1)
  - STEVENS-JOHNSON SYNDROME [None]
